FAERS Safety Report 9519103 (Version 1)
Quarter: 2013Q3

REPORT INFORMATION
  Report Type: Spontaneous
  Country: US (occurrence: US)
  Receive Date: 20130912
  Receipt Date: 20130912
  Transmission Date: 20140515
  Serious: No
  Sender: FDA-Public Use
  Company Number: US-009507513-1309USA004427

PATIENT
  Sex: Female

DRUGS (7)
  1. TIMOPTIC [Suspect]
     Indication: GLAUCOMA
     Dosage: UNK
     Route: 047
     Dates: start: 2003
  2. LUMIGAN [Concomitant]
  3. VITAMIN A [Concomitant]
  4. METFORMIN [Concomitant]
  5. SIMVASTATIN TABLETS, USP [Concomitant]
     Dosage: UNK
     Route: 048
  6. VITAMINS (UNSPECIFIED) [Concomitant]
  7. OMEGA-3 MARINE TRIGLYCERIDES [Concomitant]

REACTIONS (7)
  - Skin exfoliation [Recovered/Resolved]
  - Skin exfoliation [Recovered/Resolved]
  - Lacrimation increased [Recovered/Resolved]
  - Ocular hyperaemia [Recovered/Resolved]
  - Eye pruritus [Recovered/Resolved]
  - Eye pain [Recovered/Resolved]
  - Eye irritation [Recovered/Resolved]
